FAERS Safety Report 14649876 (Version 1)
Quarter: 2018Q1

REPORT INFORMATION
  Report Type: Spontaneous
  Country: US (occurrence: US)
  Receive Date: 20180316
  Receipt Date: 20180316
  Transmission Date: 20180509
  Serious: No
  Sender: FDA-Public Use
  Company Number: US-009507513-1803USA006372

PATIENT
  Sex: Female

DRUGS (1)
  1. GANIRELIX ACETATE INJECTION [Suspect]
     Active Substance: GANIRELIX ACETATE
     Dosage: 250 MICROGRAM, DAILY
     Route: 058
     Dates: start: 20180221

REACTIONS (2)
  - Headache [Unknown]
  - Abdominal distension [Unknown]

NARRATIVE: CASE EVENT DATE: 2018
